FAERS Safety Report 8443923-9 (Version None)
Quarter: 2012Q2

REPORT INFORMATION
  Report Type: 
  Country: None (occurrence: None)
  Receive Date: 20120611
  Receipt Date: 20120601
  Transmission Date: 20120825
  Serious: Yes (Other)
  Sender: FDA-Public Use
  Company Number: 2012SP030059

PATIENT
  Sex: Female

DRUGS (2)
  1. RIBAVIRIN [Suspect]
     Indication: HEPATITIS C
     Dosage: UNK;UNK
     Dates: start: 19990604, end: 20000407
  2. PEGASYS [Suspect]
     Indication: HEPATITIS C
     Dosage: UNK;UNK
     Dates: start: 19990604, end: 20000407

REACTIONS (1)
  - SARCOIDOSIS [None]
